FAERS Safety Report 23691972 (Version 2)
Quarter: 2024Q2

REPORT INFORMATION
  Report Type: Other
  Country: US (occurrence: None)
  Receive Date: 20240401
  Receipt Date: 20240402
  Transmission Date: 20240716
  Serious: Yes (Hospitalization)
  Sender: FDA-Public Use
  Company Number: US-ROCHE-3530430

PATIENT
  Age: 58 Year
  Sex: Female
  Weight: 77.18 kg

DRUGS (7)
  1. OCREVUS [Suspect]
     Active Substance: OCRELIZUMAB
     Indication: Multiple sclerosis
     Dosage: LATEST OCRELIZUMAB DOSE WAS ON 15/FEB/2024.
     Route: 042
     Dates: start: 2017
  2. GABAPENTIN [Concomitant]
     Active Substance: GABAPENTIN
     Indication: Muscle spasticity
     Route: 048
  3. MECLIZINE [Concomitant]
     Active Substance: MECLIZINE HYDROCHLORIDE
  4. MODAFINIL [Concomitant]
     Active Substance: MODAFINIL
  5. VIIBRYD [Concomitant]
     Active Substance: VILAZODONE HYDROCHLORIDE
  6. DALFAMPRIDINE [Concomitant]
     Active Substance: DALFAMPRIDINE
  7. MEMANTINE [Concomitant]
     Active Substance: MEMANTINE

REACTIONS (5)
  - COVID-19 [Recovered/Resolved]
  - Gait disturbance [Not Recovered/Not Resolved]
  - Immobile [Not Recovered/Not Resolved]
  - Balance disorder [Not Recovered/Not Resolved]
  - Multiple sclerosis [Unknown]

NARRATIVE: CASE EVENT DATE: 20221101
